FAERS Safety Report 19397744 (Version 2)
Quarter: 2022Q1

REPORT INFORMATION
  Report Type: Report from Study
  Country: JP (occurrence: JP)
  Receive Date: 20210610
  Receipt Date: 20220215
  Transmission Date: 20220423
  Serious: Yes (Other)
  Sender: FDA-Public Use
  Company Number: JP-ALXN-A202015308AA

PATIENT
  Age: 41 Year
  Sex: Male
  Weight: 85 kg

DRUGS (13)
  1. SOLIRIS [Suspect]
     Active Substance: ECULIZUMAB
     Dosage: 1200 MG, Q2W
     Route: 042
     Dates: start: 20190808
  2. SOLIRIS [Suspect]
     Active Substance: ECULIZUMAB
     Indication: Myasthenia gravis
     Dosage: 900 MG, QW
     Route: 042
     Dates: start: 20190711, end: 20190801
  3. DOXAZOSIN [Concomitant]
     Active Substance: DOXAZOSIN MESYLATE
     Indication: Hypertension
     Dosage: 2 MG, QD
     Route: 048
  4. MESTINON [Concomitant]
     Active Substance: PYRIDOSTIGMINE BROMIDE
     Dosage: 120 MG, BID
     Route: 048
     Dates: start: 20200528
  5. MESTINON [Concomitant]
     Active Substance: PYRIDOSTIGMINE BROMIDE
     Indication: Myasthenia gravis
     Dosage: 180 MG, TID
     Route: 048
     Dates: end: 20200527
  6. AMLODIPINE BESYLATE\TELMISARTAN [Concomitant]
     Active Substance: AMLODIPINE BESYLATE\TELMISARTAN
     Indication: Hypertension
     Dosage: 1 DF, QD
     Route: 048
  7. NEORAL [Concomitant]
     Active Substance: CYCLOSPORINE
     Indication: Myasthenia gravis
     Dosage: 300 MG, BID
     Route: 048
  8. PREDONINE                          /00016201/ [Concomitant]
     Indication: Myasthenia gravis
     Dosage: 15 MG, QD
     Route: 048
     Dates: end: 20191003
  9. PREDONINE                          /00016201/ [Concomitant]
     Dosage: 15 MG, QD
     Route: 048
     Dates: start: 20200430, end: 20200624
  10. PREDONINE                          /00016201/ [Concomitant]
     Dosage: 16 MG, QD
     Route: 048
     Dates: start: 20200318, end: 20200429
  11. PREDONINE                          /00016201/ [Concomitant]
     Dosage: 17 MG, QD
     Route: 048
     Dates: start: 20200625
  12. PREDONINE                          /00016201/ [Concomitant]
     Dosage: 17.5 MG, QD
     Route: 048
     Dates: start: 20191003, end: 20200317
  13. VESICARE [Concomitant]
     Active Substance: SOLIFENACIN SUCCINATE
     Indication: Hypertonic bladder
     Dosage: 5 MG, QD

REACTIONS (2)
  - Myasthenia gravis [Unknown]
  - Dizziness postural [Recovered/Resolved]

NARRATIVE: CASE EVENT DATE: 20190905
